FAERS Safety Report 7702115-9 (Version None)
Quarter: 2011Q3

REPORT INFORMATION
  Report Type: 
  Country: None (occurrence: None)
  Receive Date: 20110822
  Receipt Date: 20110817
  Transmission Date: 20111222
  Serious: Yes (Death, Congenital Anomaly)
  Sender: FDA-Public Use
  Company Number: US-PFIZER INC-2011159874

PATIENT
  Sex: Male
  Weight: 2.9 kg

DRUGS (8)
  1. AMBIEN [Concomitant]
     Indication: DEPRESSION
     Dosage: 10 MG, UNK
     Route: 064
     Dates: start: 20091015
  2. ZOLOFT [Suspect]
     Indication: DEPRESSION
     Dosage: 150 MG, 1X/DAY
     Route: 064
  3. PRENATAL VITAMINS [Concomitant]
     Dosage: UNK
     Route: 064
  4. VISTARIL [Concomitant]
     Dosage: UNK
     Route: 064
  5. PREVACID [Concomitant]
     Indication: GASTROOESOPHAGEAL REFLUX DISEASE
     Dosage: 30 MG, 1X/DAY
     Route: 064
     Dates: start: 20100128
  6. TAMIFLU [Concomitant]
     Indication: INFLUENZA
     Dosage: 75 MG, 2X/DAY
     Route: 064
     Dates: start: 20091117
  7. ZITHROMAX [Concomitant]
     Indication: INFLUENZA
     Dosage: UNK
     Route: 064
     Dates: start: 20091117
  8. ZYRTEC [Concomitant]
     Dosage: UNK
     Route: 064
     Dates: start: 20091117

REACTIONS (3)
  - MATERNAL EXPOSURE DURING PREGNANCY [None]
  - SUDDEN INFANT DEATH SYNDROME [None]
  - CONGENITAL ANOMALY [None]
